FAERS Safety Report 4685737-1 (Version None)
Quarter: 2005Q2

REPORT INFORMATION
  Report Type: 
  Country: None (occurrence: None)
  Receive Date: 20050608
  Receipt Date: 20050525
  Transmission Date: 20051028
  Serious: Yes (Other)
  Sender: FDA-Public Use
  Company Number: HQWYE888723MAY05

PATIENT
  Age: 82 Year
  Sex: Male
  Weight: 95.2 kg

DRUGS (2)
  1. MYLOTARG [Suspect]
     Indication: ACUTE MYELOID LEUKAEMIA
     Dosage: 13.16 MG X 1 DOSE, INTRAVENOUS
     Route: 042
     Dates: start: 20050515, end: 20050515
  2. CYTARABINE [Concomitant]

REACTIONS (7)
  - ALANINE AMINOTRANSFERASE INCREASED [None]
  - ASPARTATE AMINOTRANSFERASE INCREASED [None]
  - BLOOD ALKALINE PHOSPHATASE INCREASED [None]
  - CHILLS [None]
  - HYPERBILIRUBINAEMIA [None]
  - HYPOXIA [None]
  - PYREXIA [None]
